FAERS Safety Report 7545547-4 (Version None)
Quarter: 2011Q2

REPORT INFORMATION
  Report Type: 
  Country: None (occurrence: None)
  Receive Date: 20110614
  Receipt Date: 20110216
  Transmission Date: 20111010
  Serious: Yes (Life-Threatening, Hospitalization, Other)
  Sender: FDA-Public Use
  Company Number: JP-BAYER-200913738BYL

PATIENT
  Age: 42 Year
  Sex: Female
  Weight: 40.8 kg

DRUGS (3)
  1. NEXAVAR [Suspect]
     Dosage: 400 MG (DAILY DOSE), , ORAL
     Route: 048
     Dates: end: 20091010
  2. NEXAVAR [Suspect]
     Indication: HEPATIC NEOPLASM MALIGNANT
     Dosage: 800 MG (DAILY DOSE), , ORAL
     Route: 048
     Dates: start: 20090914
  3. NEXAVAR [Suspect]
     Dosage: 200 MG, QOD
     Route: 048
     Dates: start: 20091117

REACTIONS (7)
  - CHOLECYSTITIS ACUTE [None]
  - EOSINOPHIL COUNT INCREASED [None]
  - PALMAR-PLANTAR ERYTHRODYSAESTHESIA SYNDROME [None]
  - PLATELET COUNT DECREASED [None]
  - HEPATIC FUNCTION ABNORMAL [None]
  - DIARRHOEA [None]
  - NEUTROPHIL COUNT INCREASED [None]
